FAERS Safety Report 6821227-5 (Version None)
Quarter: 2010Q3

REPORT INFORMATION
  Report Type: 
  Country: None (occurrence: None)
  Receive Date: 20100707
  Receipt Date: 20080401
  Transmission Date: 20110219
  Serious: No
  Sender: FDA-Public Use
  Company Number: US-PFIZER INC-2008029509

PATIENT
  Sex: Female
  Weight: 45.454 kg

DRUGS (1)
  1. SERTRALINE [Suspect]
     Indication: ANXIETY
     Dates: start: 20071101, end: 20080331

REACTIONS (5)
  - CRYING [None]
  - DISTURBANCE IN ATTENTION [None]
  - HEADACHE [None]
  - INSOMNIA [None]
  - UNEVALUABLE EVENT [None]
